FAERS Safety Report 20094335 (Version 1)
Quarter: 2021Q4

REPORT INFORMATION
  Report Type: Spontaneous
  Country: US (occurrence: US)
  Receive Date: 20211122
  Receipt Date: 20211122
  Transmission Date: 20220303
  Serious: Yes (Other)
  Sender: FDA-Public Use
  Company Number: US-CIPLA LTD.-2021US07534

PATIENT

DRUGS (4)
  1. VALACYCLOVIR [Suspect]
     Active Substance: VALACYCLOVIR HYDROCHLORIDE
     Indication: Viral labyrinthitis
     Dosage: UNK
     Route: 048
  2. VALACYCLOVIR [Suspect]
     Active Substance: VALACYCLOVIR HYDROCHLORIDE
     Indication: Varicella zoster virus infection
  3. ACYCLOVIR [Suspect]
     Active Substance: ACYCLOVIR
     Indication: Viral labyrinthitis
     Dosage: UNK
     Route: 042
  4. ACYCLOVIR [Suspect]
     Active Substance: ACYCLOVIR
     Indication: Varicella zoster virus infection

REACTIONS (3)
  - Neurotoxicity [Recovering/Resolving]
  - Drug level increased [Recovering/Resolving]
  - Encephalopathy [Recovering/Resolving]
